FAERS Safety Report 7603759-5 (Version None)
Quarter: 2011Q3

REPORT INFORMATION
  Report Type: 
  Country: None (occurrence: None)
  Receive Date: 20110712
  Receipt Date: 20110624
  Transmission Date: 20111222
  Serious: Yes (Hospitalization)
  Sender: FDA-Public Use
  Company Number: US-GLAXOSMITHKLINE-A0908089A

PATIENT
  Sex: Male
  Weight: 111.4 kg

DRUGS (8)
  1. AVANDIA [Suspect]
     Indication: DIABETES MELLITUS
     Route: 048
     Dates: start: 19990101, end: 20080101
  2. NASACORT [Concomitant]
  3. METFORMIN HCL [Concomitant]
  4. SINGULAIR [Concomitant]
  5. GLUCOTROL [Concomitant]
  6. VYTORIN [Concomitant]
  7. AVANDAMET [Suspect]
     Indication: DIABETES MELLITUS
     Route: 048
  8. DIOVAN HCT [Concomitant]

REACTIONS (6)
  - CORONARY ARTERY DISEASE [None]
  - ISCHAEMIC CARDIOMYOPATHY [None]
  - CARDIAC FAILURE CONGESTIVE [None]
  - HEART VALVE INCOMPETENCE [None]
  - ATRIAL FIBRILLATION [None]
  - SICK SINUS SYNDROME [None]
